FAERS Safety Report 5859001-9 (Version None)
Quarter: 2008Q3

REPORT INFORMATION
  Report Type: 
  Country: None (occurrence: None)
  Receive Date: 20080825
  Receipt Date: 20080812
  Transmission Date: 20090109
  Serious: Yes (Death, Life-Threatening, Other)
  Sender: FDA-Public Use
  Company Number: MC200800369

PATIENT
  Age: 54 Year
  Sex: Female
  Weight: 65.8 kg

DRUGS (6)
  1. ANGIOMAX [Suspect]
     Indication: PERCUTANEOUS CORONARY INTERVENTION
     Dates: start: 20080806, end: 20080806
  2. PREDNISONE TAB [Concomitant]
  3. IMURAN [Concomitant]
  4. CORTICOSTEROIDS [Concomitant]
  5. BENADRYL [Concomitant]
  6. PEPCID /00706001/ (FAMOTIDINE) [Concomitant]

REACTIONS (12)
  - ANGINA PECTORIS [None]
  - CARDIAC ARREST [None]
  - CARDIAC TAMPONADE [None]
  - CHEST DISCOMFORT [None]
  - CORONARY ARTERY PERFORATION [None]
  - CORONARY ARTERY THROMBOSIS [None]
  - DYSPNOEA [None]
  - ELECTROCARDIOGRAM ST SEGMENT ELEVATION [None]
  - PERICARDIAL EFFUSION [None]
  - RESPIRATORY ARREST [None]
  - SINUS BRADYCARDIA [None]
  - THROMBOSIS [None]
